FAERS Safety Report 6058255-6 (Version None)
Quarter: 2009Q1

REPORT INFORMATION
  Report Type: 
  Country: None (occurrence: None)
  Receive Date: 20090128
  Receipt Date: 20090128
  Transmission Date: 20090719
  Serious: Yes (Other)
  Sender: FDA-Public Use
  Company Number: None

PATIENT
  Sex: Female

DRUGS (1)
  1. ADDERALL 30 [Suspect]
     Dosage: 30 MG 1 DAILY P.O.
     Route: 048

REACTIONS (1)
  - DRUG INTOLERANCE [None]
